FAERS Safety Report 9519530 (Version 3)
Quarter: 2013Q4

REPORT INFORMATION
  Report Type: Spontaneous
  Country: US (occurrence: US)
  Receive Date: 20130912
  Receipt Date: 20131115
  Transmission Date: 20140711
  Serious: Yes (Other)
  Sender: FDA-Public Use
  Company Number: US-PFIZER INC-2013251165

PATIENT
  Age: 51 Year
  Sex: Female
  Weight: 104 kg

DRUGS (7)
  1. LYRICA [Suspect]
     Indication: FIBROMYALGIA
     Dosage: 150 MG, 2X/DAY
     Route: 048
     Dates: start: 201304
  2. SINGULAIR [Concomitant]
     Indication: ASTHMA
     Dosage: 100 MG, 1X/DAY
  3. SINGULAIR [Concomitant]
     Indication: HYPERSENSITIVITY
  4. CYMBALTA [Concomitant]
     Indication: FIBROMYALGIA
     Dosage: 60 MG, 2X/DAY
  5. CYMBALTA [Concomitant]
     Dosage: 150 MG, 1X/DAY
  6. VOLTAREN [Concomitant]
     Indication: FIBROMYALGIA
     Dosage: 75 MG, 2X/DAY
  7. ZIAC [Concomitant]
     Dosage: UNK

REACTIONS (1)
  - Foot fracture [Unknown]
